FAERS Safety Report 5363139-2 (Version None)
Quarter: 2007Q2

REPORT INFORMATION
  Report Type: 
  Country: None (occurrence: None)
  Receive Date: 20070618
  Receipt Date: 20070618
  Transmission Date: 20071010
  Serious: Yes (Other)
  Sender: FDA-Public Use
  Company Number: None

PATIENT
  Age: 57 Year
  Sex: Male
  Weight: 57.1532 kg

DRUGS (2)
  1. CARIMUNE [Suspect]
     Indication: BLOOD IMMUNOGLOBULIN A
     Dosage: 18 GMS MONTHLY IV DRIP
     Route: 041
     Dates: start: 20060817, end: 20070614
  2. CARIMUNE [Suspect]
     Indication: BLOOD IMMUNOGLOBULIN M DECREASED
     Dosage: 18 GMS MONTHLY IV DRIP
     Route: 041
     Dates: start: 20060817, end: 20070614

REACTIONS (1)
  - CHILLS [None]
